FAERS Safety Report 5662743-1 (Version None)
Quarter: 2008Q1

REPORT INFORMATION
  Report Type: 
  Country: None (occurrence: None)
  Receive Date: 20080313
  Receipt Date: 20080228
  Transmission Date: 20080703
  Serious: Yes (Disabling)
  Sender: FDA-Public Use
  Company Number: DE-AMGEN-UK267943

PATIENT
  Sex: Female

DRUGS (1)
  1. MIMPARA [Suspect]
     Indication: RENAL TRANSPLANT
     Route: 048

REACTIONS (3)
  - EAR DISCOMFORT [None]
  - FEELING ABNORMAL [None]
  - HYPOACUSIS [None]
